FAERS Safety Report 5161747-5 (Version None)
Quarter: 2006Q4

REPORT INFORMATION
  Report Type: 
  Country: None (occurrence: None)
  Receive Date: 20061130
  Receipt Date: 20061120
  Transmission Date: 20070319
  Serious: Yes (Hospitalization)
  Sender: FDA-Public Use
  Company Number: FR-GLAXOSMITHKLINE-B0447299A

PATIENT
  Age: 56 Year
  Sex: Male
  Weight: 78 kg

DRUGS (8)
  1. FRAXODI [Suspect]
     Indication: DEEP VEIN THROMBOSIS
     Dosage: .7ML PER DAY
     Route: 058
     Dates: start: 20060826, end: 20060915
  2. NICORETTE [Suspect]
     Dosage: 1UNIT PER DAY
     Route: 061
     Dates: start: 20060817, end: 20060915
  3. NEXIUM [Suspect]
     Dosage: 20MG AT NIGHT
     Route: 048
     Dates: start: 20060825, end: 20060906
  4. EFFERALGAN CODEINE [Concomitant]
     Dosage: 2UNIT THREE TIMES PER DAY
     Route: 048
     Dates: start: 20060905, end: 20060906
  5. PREVISCAN [Concomitant]
     Dosage: 20MG AT NIGHT
     Route: 048
     Dates: start: 20060905
  6. SOLUPRED [Concomitant]
     Dosage: 60MG IN THE MORNING
     Route: 048
     Dates: start: 20060825
  7. ATARAX [Concomitant]
     Dosage: 100MG PER DAY
     Route: 048
     Dates: start: 20060912, end: 20060913
  8. CHEMOTHERAPY [Concomitant]

REACTIONS (4)
  - BLOOD ALKALINE PHOSPHATASE INCREASED [None]
  - CHOLESTASIS [None]
  - MIXED HEPATOCELLULAR-CHOLESTATIC INJURY [None]
  - TRANSAMINASES INCREASED [None]
